FAERS Safety Report 8589119-1 (Version None)
Quarter: 2012Q3

REPORT INFORMATION
  Report Type: 
  Country: None (occurrence: None)
  Receive Date: 20120813
  Receipt Date: 20120803
  Transmission Date: 20120928
  Serious: Yes (Other)
  Sender: FDA-Public Use
  Company Number: JP-ASTELLAS-2012JP007522

PATIENT
  Age: 56 Year
  Sex: Male

DRUGS (4)
  1. PREDNISOLONE [Concomitant]
     Indication: LIVER TRANSPLANT
     Route: 065
  2. PROGRAF [Suspect]
     Indication: LIVER TRANSPLANT
     Dosage: UNK
     Route: 065
     Dates: start: 20110201
  3. PROGRAF [Suspect]
     Dosage: UNK
     Route: 065
     Dates: end: 20110201
  4. CELLCEPT [Concomitant]
     Indication: LIVER TRANSPLANT
     Route: 048

REACTIONS (3)
  - LIVER TRANSPLANT REJECTION [None]
  - RENAL DISORDER [None]
  - DRUG INEFFECTIVE [None]
